FAERS Safety Report 8044339-X (Version None)
Quarter: 2012Q1

REPORT INFORMATION
  Report Type: 
  Country: None (occurrence: None)
  Receive Date: 20120113
  Receipt Date: 20120111
  Transmission Date: 20120608
  Serious: Yes (Disabling, Other)
  Sender: FDA-Public Use
  Company Number: DE-SANOFI-AVENTIS-2011SA084368

PATIENT
  Age: 72 Year
  Sex: Female
  Weight: 64 kg

DRUGS (12)
  1. CEFUROXIME [Concomitant]
     Indication: INFECTIVE EXACERBATION OF CHRONIC OBSTRUCTIVE AIRWAYS DISEASE
     Route: 048
     Dates: start: 20111213, end: 20111219
  2. PANTOPRAZOLE SODIUM [Concomitant]
     Route: 048
     Dates: start: 20111212, end: 20111216
  3. BISOPROLOL FUMARATE [Concomitant]
     Route: 048
     Dates: start: 20100705
  4. ACETYLSALICYLIC ACID SRT [Concomitant]
     Indication: CORONARY ARTERY DISEASE
     Route: 048
     Dates: start: 20100703, end: 20111223
  5. RAMIPRIL [Concomitant]
     Route: 048
     Dates: start: 20050101
  6. SPIRIVA [Concomitant]
     Indication: CHRONIC OBSTRUCTIVE PULMONARY DISEASE
     Dosage: DOSE:1 PUFF(S)
     Route: 055
     Dates: start: 20101111
  7. MULTAQ [Suspect]
     Route: 048
     Dates: start: 20100715, end: 20111223
  8. COLECALCIFEROL [Concomitant]
     Indication: OSTEOPOROSIS
     Route: 048
     Dates: start: 20100422
  9. RULID [Interacting]
     Indication: INFECTIVE EXACERBATION OF CHRONIC OBSTRUCTIVE AIRWAYS DISEASE
     Route: 048
     Dates: start: 20111213, end: 20111219
  10. LERCANIDIPINE [Concomitant]
     Route: 048
     Dates: start: 20110313, end: 20111223
  11. FLUTICASONE PROPIONATE/SALMETEROL [Concomitant]
     Indication: CHRONIC OBSTRUCTIVE PULMONARY DISEASE
     Dosage: DOSE:1 PUFF(S)
     Route: 055
     Dates: start: 20110201
  12. SIMVASTATIN [Concomitant]
     Indication: HYPERLIPIDAEMIA
     Route: 048
     Dates: start: 20100703

REACTIONS (6)
  - DRUG INTERACTION [None]
  - BLOOD PRESSURE DECREASED [None]
  - FATIGUE [None]
  - ATRIAL FIBRILLATION [None]
  - CONTRAINDICATION TO MEDICAL TREATMENT [None]
  - GENERAL PHYSICAL HEALTH DETERIORATION [None]
